FAERS Safety Report 16207515 (Version 1)
Quarter: 2019Q2

REPORT INFORMATION
  Report Type: Spontaneous
  Country: FR (occurrence: FR)
  Receive Date: 20190417
  Receipt Date: 20190417
  Transmission Date: 20190711
  Serious: Yes (Other)
  Sender: FDA-Public Use
  Company Number: FR-ROCHE-2234816

PATIENT
  Sex: Male
  Weight: 88 kg

DRUGS (1)
  1. ALECENSA [Suspect]
     Active Substance: ALECTINIB HYDROCHLORIDE
     Indication: INFLAMMATORY MYOFIBROBLASTIC TUMOUR
     Route: 065
     Dates: start: 20181218

REACTIONS (3)
  - Off label use [Unknown]
  - Organising pneumonia [Unknown]
  - Intentional product use issue [Unknown]
